FAERS Safety Report 7741265-8 (Version None)
Quarter: 2011Q3

REPORT INFORMATION
  Report Type: 
  Country: None (occurrence: None)
  Receive Date: 20110909
  Receipt Date: 20110901
  Transmission Date: 20111222
  Serious: Yes (Other)
  Sender: FDA-Public Use
  Company Number: US-US-EMD SERONO, INC.-7071095

PATIENT
  Sex: Female

DRUGS (2)
  1. REBIF [Suspect]
     Indication: MULTIPLE SCLEROSIS
     Route: 058
     Dates: start: 20070117
  2. ANALGESIC [Concomitant]
     Indication: PREMEDICATION

REACTIONS (6)
  - INJECTION SITE HAEMATOMA [None]
  - INFLUENZA LIKE ILLNESS [None]
  - AFFECTIVE DISORDER [None]
  - DYSPHONIA [None]
  - BALANCE DISORDER [None]
  - PNEUMONIA [None]
